FAERS Safety Report 4591083-7 (Version None)
Quarter: 2005Q1

REPORT INFORMATION
  Report Type: 
  Country: None (occurrence: None)
  Receive Date: 20050225
  Receipt Date: 20050218
  Transmission Date: 20050727
  Serious: Yes (Death, Life-Threatening, Hospitalization)
  Sender: FDA-Public Use
  Company Number: 200510621FR

PATIENT
  Age: 82 Year
  Sex: Male
  Weight: 56 kg

DRUGS (6)
  1. FLAGYL [Suspect]
     Route: 048
     Dates: start: 20050114, end: 20050124
  2. PLAVIX [Suspect]
     Dosage: DOSE UNIT: UNITS
     Route: 048
     Dates: start: 20041104, end: 20050105
  3. MODOPAR [Suspect]
     Route: 048
     Dates: start: 20041104, end: 20050124
  4. COLCHIMAX [Suspect]
     Indication: GOUTY ARTHRITIS
     Route: 048
     Dates: start: 20050118, end: 20050124
  5. CORDARONE [Suspect]
     Route: 048
     Dates: start: 20041104, end: 20050124
  6. ZECLAR [Suspect]
     Route: 048
     Dates: start: 20050101, end: 20050124

REACTIONS (5)
  - DRUG INEFFECTIVE [None]
  - DRUG INTERACTION [None]
  - DRUG TOXICITY [None]
  - FEBRILE NEUTROPENIA [None]
  - THROMBOCYTOPENIA [None]
